FAERS Safety Report 9393491 (Version 1)
Quarter: 2013Q3

REPORT INFORMATION
  Report Type: Spontaneous
  Country: JP (occurrence: JP)
  Receive Date: 20130710
  Receipt Date: 20130710
  Transmission Date: 20140515
  Serious: Yes (Other)
  Sender: FDA-Public Use
  Company Number: PHHY2013JP070353

PATIENT
  Age: 60 Year
  Sex: Male

DRUGS (15)
  1. CLOMIPRAMINE [Suspect]
     Indication: DEPRESSION
     Dosage: 75 MG, DAILY
  2. CLOMIPRAMINE [Suspect]
     Dosage: 150 MG, DAILY
  3. CLOMIPRAMINE [Suspect]
     Dosage: 50 MG, DAILY
  4. NORTRIPTYLINE [Suspect]
     Indication: DEPRESSION
     Dosage: 50 MG, DAILY
  5. NORTRIPTYLINE [Suspect]
     Dosage: 100 MG, DAILY
  6. LITHIUM [Concomitant]
     Indication: DEPRESSION
     Dosage: 400 MG, DAILY
  7. RISPERIDONE [Concomitant]
     Indication: DEPRESSION
     Dosage: 0.5 MG, DAILY
  8. RISPERIDONE [Concomitant]
     Dosage: 1 MG, DAILY
  9. SULPIRIDE [Concomitant]
     Indication: DEPRESSION
     Dosage: 150 MG, DAILY
  10. CLONAZEPAM [Concomitant]
     Indication: DEPRESSION
     Dosage: 1 MG, DAILY
  11. CLONAZEPAM [Concomitant]
     Dosage: 0.5 MG, DAILY
  12. MIRTAZAPINE [Concomitant]
     Indication: DEPRESSION
     Dosage: 30 MG, DAILY
  13. MIRTAZAPINE [Concomitant]
     Dosage: 45 MG, DAILY
  14. FLUNITRAZEPAM [Concomitant]
     Indication: DEPRESSION
     Dosage: 2 MG, DAILY
  15. PILSICAINIDE [Concomitant]

REACTIONS (1)
  - Brugada syndrome [Recovered/Resolved]
